FAERS Safety Report 18944561 (Version 13)
Quarter: 2022Q1

REPORT INFORMATION
  Report Type: Report from Study
  Country: BE (occurrence: None)
  Receive Date: 20210226
  Receipt Date: 20220204
  Transmission Date: 20220423
  Serious: Yes (Hospitalization)
  Sender: FDA-Public Use
  Company Number: BE-ROCHE-2775147

PATIENT
  Age: 78 Year
  Sex: Male
  Weight: 92 kg

DRUGS (23)
  1. PLACEBO [Suspect]
     Active Substance: UNSPECIFIED INGREDIENT
     Indication: Small cell lung cancer extensive stage
     Dosage: DATE OF MOST RECENT DOSE PRIOR TO AE/SAE ONSET: 16/FEB/2021
     Route: 042
     Dates: start: 20201229
  2. ATEZOLIZUMAB [Suspect]
     Active Substance: ATEZOLIZUMAB
     Indication: Small cell lung cancer extensive stage
     Dosage: DATE OF MOST RECENT DOSE PRIOR TO AE/SAE ONSET: 16/FEB/2021 WAS 1200 MG.
     Route: 042
     Dates: start: 20201229
  3. CARBOPLATIN [Suspect]
     Active Substance: CARBOPLATIN
     Indication: Small cell lung cancer extensive stage
     Dosage: DATE OF MOST RECENT DOSE PRIOR TO AE/SAE ONSET: 16/FEB/2021 (661 MG).
     Route: 042
     Dates: start: 20201229
  4. ETOPOSIDE [Suspect]
     Active Substance: ETOPOSIDE
     Indication: Small cell lung cancer extensive stage
     Dosage: DATE OF MOST RECENT DOSE PRIOR TO AE/SAE ONSET: 18/FEB/2021 (211 MG).?ON DAYS 1, 2 AND 3 OF EACH 21-
     Route: 042
     Dates: start: 20201229
  5. BISOPROLOL [Concomitant]
     Active Substance: BISOPROLOL
     Indication: Hypertension
     Route: 048
  6. AMLODIPINE [Concomitant]
     Active Substance: AMLODIPINE BESYLATE
     Indication: Hypertension
     Route: 048
  7. FLUDROCORTISONE [Concomitant]
     Active Substance: FLUDROCORTISONE
     Route: 048
  8. HYDROCORTISONE [Concomitant]
     Active Substance: HYDROCORTISONE
     Indication: Prophylaxis
     Route: 048
  9. HYDROCORTISONE [Concomitant]
     Active Substance: HYDROCORTISONE
     Route: 048
  10. TRELEGY ELLIPTA [Concomitant]
     Active Substance: FLUTICASONE FUROATE\UMECLIDINIUM BROMIDE\VILANTEROL TRIFENATATE
     Indication: Asthma
     Route: 048
  11. FENOTEROL HYDROBROMIDE [Concomitant]
     Active Substance: FENOTEROL HYDROBROMIDE
     Indication: Asthma
     Dosage: 1 PUFF
     Route: 055
  12. PANTOPRAZOLE SODIUM [Concomitant]
     Active Substance: PANTOPRAZOLE SODIUM
     Indication: Gastritis
     Route: 048
     Dates: start: 20210218
  13. ULTRA K [Concomitant]
     Indication: Hypokalaemia
     Route: 048
     Dates: start: 20210218, end: 20210226
  14. MAGNETOP [Concomitant]
     Indication: Hypomagnesaemia
     Dosage: DRUG DOSE FIRST ADMINISTERED IS 1 OTHER
     Route: 048
     Dates: start: 20210218
  15. NADROPARIN CALCIUM [Concomitant]
     Active Substance: NADROPARIN CALCIUM
     Route: 058
     Dates: start: 20210219, end: 20210219
  16. NADROPARIN CALCIUM [Concomitant]
     Active Substance: NADROPARIN CALCIUM
     Route: 058
     Dates: start: 20210220, end: 20210304
  17. PIPERACILLIN SODIUM\TAZOBACTAM SODIUM [Concomitant]
     Active Substance: PIPERACILLIN SODIUM\TAZOBACTAM SODIUM
     Indication: Pneumonia aspiration
     Route: 042
     Dates: start: 20210220, end: 20210228
  18. METOPROLOL [Concomitant]
     Active Substance: METOPROLOL
     Route: 042
     Dates: start: 20210221, end: 20210225
  19. SIMBRINZA [Concomitant]
     Active Substance: BRIMONIDINE TARTRATE\BRINZOLAMIDE
     Dosage: 1 GTT
     Route: 047
     Dates: start: 20210222
  20. LASIX [Concomitant]
     Active Substance: FUROSEMIDE
     Indication: Hypervolaemia
     Route: 048
     Dates: start: 20210227, end: 20210302
  21. ALDACTONE [Concomitant]
     Active Substance: SPIRONOLACTONE
     Indication: Hypervolaemia
     Route: 048
     Dates: start: 20210228, end: 20210302
  22. ALDACTONE [Concomitant]
     Active Substance: SPIRONOLACTONE
     Route: 048
     Dates: start: 20210303
  23. TIMOLOL MALEATE\TRAVOPROST [Concomitant]
     Active Substance: TIMOLOL MALEATE\TRAVOPROST
     Dosage: 1 GTT
     Route: 047
     Dates: start: 20210222

REACTIONS (2)
  - Encephalitis [Not Recovered/Not Resolved]
  - Atrial fibrillation [Not Recovered/Not Resolved]

NARRATIVE: CASE EVENT DATE: 20210219
